FAERS Safety Report 8025713-4 (Version None)
Quarter: 2012Q1

REPORT INFORMATION
  Report Type: 
  Country: None (occurrence: None)
  Receive Date: 20120105
  Receipt Date: 20110818
  Transmission Date: 20120608
  Serious: No
  Sender: FDA-Public Use
  Company Number: US-ABBOTT-10P-163-0638130-00

PATIENT
  Sex: Female
  Weight: 65.83 kg

DRUGS (4)
  1. LIPITOR [Concomitant]
     Indication: PRODUCT USED FOR UNKNOWN INDICATION
  2. SYNTHROID [Suspect]
     Indication: HYPOTHYROIDISM
     Dates: start: 20080101
  3. ZOLPIDEM [Concomitant]
     Indication: INSOMNIA
  4. SYNTHROID [Suspect]

REACTIONS (3)
  - ASTHENIA [None]
  - BLOOD THYROID STIMULATING HORMONE ABNORMAL [None]
  - WEIGHT INCREASED [None]
